FAERS Safety Report 6395806-6 (Version None)
Quarter: 2009Q4

REPORT INFORMATION
  Report Type: 
  Country: None (occurrence: None)
  Receive Date: 20091009
  Receipt Date: 20090709
  Transmission Date: 20100525
  Serious: No
  Sender: FDA-Public Use
  Company Number: A0789746A

PATIENT
  Age: 46 Year
  Sex: Female

DRUGS (8)
  1. TYKERB [Suspect]
     Indication: BREAST CANCER
     Dosage: 5TAB PER DAY
     Route: 048
     Dates: start: 20090523, end: 20090618
  2. ONE A DAY WOMEN'S FORMULA [Concomitant]
  3. CALCIUM [Concomitant]
  4. M.V.I. [Concomitant]
  5. TAXOL [Concomitant]
  6. HERCEPTIN [Concomitant]
  7. TAGAMET [Concomitant]
  8. NAUSEA MEDICATION (UNKNOWN) [Concomitant]

REACTIONS (14)
  - ACNE [None]
  - DEHYDRATION [None]
  - DIARRHOEA [None]
  - DRY SKIN [None]
  - FATIGUE [None]
  - HYPERSENSITIVITY [None]
  - NAUSEA [None]
  - PRURITUS [None]
  - RASH [None]
  - RASH ERYTHEMATOUS [None]
  - RASH PRURITIC [None]
  - SCAB [None]
  - SKIN EXFOLIATION [None]
  - WHITE BLOOD CELL COUNT DECREASED [None]
